FAERS Safety Report 8991184 (Version 2)
Quarter: 2013Q1

REPORT INFORMATION
  Report Type: Spontaneous
  Country: JP (occurrence: JP)
  Receive Date: 20121231
  Receipt Date: 20130115
  Transmission Date: 20140127
  Serious: Yes (Hospitalization)
  Sender: FDA-Public Use
  Company Number: JP-MERCK-1212JPN009510

PATIENT
  Age: 95 Year
  Sex: Female
  Weight: 41 kg

DRUGS (2)
  1. FOSAMAC TABLETS 35MG [Suspect]
     Indication: OSTEOPOROSIS
     Dosage: 35 MG, QW
     Route: 048
     Dates: start: 20090714, end: 20121015
  2. WARKMIN [Suspect]
     Indication: OSTEOPOROSIS
     Dosage: 1 MICROGRAM, QD
     Route: 048
     Dates: start: 20090714, end: 20121015

REACTIONS (1)
  - Atypical femur fracture [Recovering/Resolving]
